FAERS Safety Report 5704209-6 (Version None)
Quarter: 2008Q2

REPORT INFORMATION
  Report Type: 
  Country: None (occurrence: None)
  Receive Date: 20080414
  Receipt Date: 20080303
  Transmission Date: 20081010
  Serious: No
  Sender: FDA-Public Use
  Company Number: US-BAYER-200815884NA

PATIENT
  Age: 17 Year
  Sex: Female
  Weight: 54 kg

DRUGS (7)
  1. ULTRAVIST (PHARMACY BULK) [Suspect]
     Indication: COMPUTERISED TOMOGRAM ABDOMEN
     Route: 042
     Dates: start: 20080303, end: 20080303
  2. PROZAC [Concomitant]
  3. ZANTAC [Concomitant]
  4. ANTIBIOTICS [Concomitant]
  5. XANAX [Concomitant]
  6. TOPROMAX [Concomitant]
  7. READI-CAT 2 [Concomitant]
     Indication: COMPUTERISED TOMOGRAM ABDOMEN
     Route: 048

REACTIONS (2)
  - COUGH [None]
  - DYSPNOEA [None]
